FAERS Safety Report 6224329-X (Version None)
Quarter: 2009Q2

REPORT INFORMATION
  Report Type: 
  Country: None (occurrence: None)
  Receive Date: 20090612
  Receipt Date: 20090316
  Transmission Date: 20091009
  Serious: No
  Sender: FDA-Public Use
  Company Number: US-ABBOTT-09P-163-0562890-00

PATIENT
  Sex: Female
  Weight: 77.18 kg

DRUGS (7)
  1. HUMIRA [Suspect]
     Indication: RHEUMATOID ARTHRITIS
     Route: 058
     Dates: start: 20040101
  2. PLAQUENIL [Concomitant]
     Indication: RHEUMATOID ARTHRITIS
     Route: 048
  3. NAPROSYN [Concomitant]
     Indication: PAIN
     Route: 048
  4. ARAVA [Concomitant]
     Indication: IMMUNE SYSTEM DISORDER
     Route: 048
  5. TOPAMAX [Concomitant]
     Indication: FIBROMYALGIA
     Route: 048
  6. DIOVAN HCT [Concomitant]
     Indication: HYPERTENSION
     Dosage: 1 - 160/12.5 MG TAB DAILY
     Route: 048
  7. AMITRIPTLINE HYDROCHLORIDE TAB [Concomitant]
     Indication: INSOMNIA
     Route: 048

REACTIONS (5)
  - DYSPNOEA [None]
  - HYPERTENSION [None]
  - INJECTION SITE HAEMATOMA [None]
  - LUNG DISORDER [None]
  - PALPITATIONS [None]
